FAERS Safety Report 14492554 (Version 2)
Quarter: 2018Q3

REPORT INFORMATION
  Report Type: Spontaneous
  Country: IT (occurrence: IT)
  Receive Date: 20180206
  Receipt Date: 20180717
  Transmission Date: 20181010
  Serious: Yes (Hospitalization)
  Sender: FDA-Public Use
  Company Number: IT-PFIZER INC-2018051465

PATIENT
  Age: 51 Year
  Sex: Female
  Weight: 60 kg

DRUGS (1)
  1. DIFLUCAN [Suspect]
     Active Substance: FLUCONAZOLE
     Indication: ONYCHOMYCOSIS
     Dosage: 100 MG, 1X/DAY
     Route: 048
     Dates: start: 20171205, end: 20171214

REACTIONS (5)
  - Eye oedema [Recovering/Resolving]
  - Oral pruritus [Recovering/Resolving]
  - Rash [Recovering/Resolving]
  - Lip oedema [Recovering/Resolving]
  - Dyspnoea [Recovering/Resolving]

NARRATIVE: CASE EVENT DATE: 20171205
